FAERS Safety Report 11123151 (Version 1)
Quarter: 2015Q2

REPORT INFORMATION
  Report Type: Spontaneous
  Country: US (occurrence: US)
  Receive Date: 20150519
  Receipt Date: 20150519
  Transmission Date: 20150821
  Serious: Yes (Hospitalization)
  Sender: FDA-Public Use
  Company Number: US-MYLANLABS-2015M1016383

PATIENT

DRUGS (12)
  1. FLUDARABINE [Concomitant]
     Active Substance: FLUDARABINE PHOSPHATE
     Indication: CHRONIC LYMPHOCYTIC LEUKAEMIA
     Route: 065
  2. COTRIMOXAZOLE [Concomitant]
     Active Substance: SULFAMETHOXAZOLE\TRIMETHOPRIM
     Route: 065
  3. GANCICLOVIR. [Concomitant]
     Active Substance: GANCICLOVIR
     Indication: PNEUMONIA CYTOMEGALOVIRAL
     Route: 042
  4. RITUXIMAB [Concomitant]
     Active Substance: RITUXIMAB
     Indication: CHRONIC LYMPHOCYTIC LEUKAEMIA
     Route: 065
  5. IMMUNE GLOBULIN [Concomitant]
     Active Substance: HUMAN IMMUNOGLOBULIN G
     Indication: PNEUMONIA CYTOMEGALOVIRAL
     Route: 042
  6. CIDOFOVIR. [Suspect]
     Active Substance: CIDOFOVIR
     Indication: PNEUMONIA CYTOMEGALOVIRAL
     Route: 042
  7. CIDOFOVIR. [Suspect]
     Active Substance: CIDOFOVIR
     Route: 042
  8. VALGANCICLOVIR [Suspect]
     Active Substance: VALGANCICLOVIR
     Indication: CYTOMEGALOVIRUS INFECTION
     Route: 065
  9. FOSCARNET [Suspect]
     Active Substance: FOSCARNET
     Indication: PNEUMONIA CYTOMEGALOVIRAL
     Route: 042
  10. FOSCARNET [Suspect]
     Active Substance: FOSCARNET
     Route: 042
  11. ALEMTUZUMAB [Concomitant]
     Active Substance: ALEMTUZUMAB
     Indication: CHRONIC LYMPHOCYTIC LEUKAEMIA
     Route: 065
  12. CYCLOPHOSPHAMIDE. [Concomitant]
     Active Substance: CYCLOPHOSPHAMIDE
     Indication: CHRONIC LYMPHOCYTIC LEUKAEMIA
     Route: 065

REACTIONS (7)
  - Pulmonary oedema [Not Recovered/Not Resolved]
  - Viral load increased [Not Recovered/Not Resolved]
  - Blood electrolytes abnormal [Unknown]
  - Nephropathy toxic [Unknown]
  - Multiple-drug resistance [Not Recovered/Not Resolved]
  - Pneumonia cytomegaloviral [Recovering/Resolving]
  - Hypoxia [Unknown]
